FAERS Safety Report 4677313-1 (Version None)
Quarter: 2005Q2

REPORT INFORMATION
  Report Type: 
  Country: None (occurrence: None)
  Receive Date: 20050531
  Receipt Date: 20010116
  Transmission Date: 20051028
  Serious: Yes (Life-Threatening, Hospitalization)
  Sender: FDA-Public Use
  Company Number: 200110480FR

PATIENT
  Sex: Female
  Weight: 60 kg

DRUGS (5)
  1. DOCETAXEL [Suspect]
     Indication: BREAST CANCER
     Route: 042
     Dates: start: 20001218, end: 20001218
  2. ADRIAMYCIN PFS [Suspect]
     Indication: BREAST CANCER
     Route: 042
     Dates: start: 20001218, end: 20001218
  3. KARDEGIC [Concomitant]
     Indication: TRANSIENT ISCHAEMIC ATTACK
  4. SOLU-MEDROL [Concomitant]
     Dates: start: 20001218, end: 20001218
  5. ONDANSETRON [Concomitant]
     Dates: start: 20001218, end: 20001218

REACTIONS (15)
  - ABDOMINAL PAIN [None]
  - CORNEAL ULCER [None]
  - DIVERTICULUM INTESTINAL [None]
  - FEMALE GENITAL-DIGESTIVE TRACT FISTULA [None]
  - HAEMODYNAMIC INSTABILITY [None]
  - IMPAIRED HEALING [None]
  - INTESTINAL OBSTRUCTION [None]
  - LARGE INTESTINE PERFORATION [None]
  - MULTI-ORGAN FAILURE [None]
  - NEUTROPENIA [None]
  - PERITONEAL HAEMORRHAGE [None]
  - PERITONEAL INFECTION [None]
  - PERITONITIS [None]
  - RENAL FAILURE [None]
  - SEPTIC SHOCK [None]
